FAERS Safety Report 7649896-0 (Version None)
Quarter: 2011Q3

REPORT INFORMATION
  Report Type: 
  Country: None (occurrence: None)
  Receive Date: 20110802
  Receipt Date: 20110718
  Transmission Date: 20111222
  Serious: Yes (Hospitalization)
  Sender: FDA-Public Use
  Company Number: US-ELI_LILLY_AND_COMPANY-US201106000477

PATIENT
  Sex: Female
  Weight: 51.701 kg

DRUGS (8)
  1. ASPIRIN [Concomitant]
  2. FOLIC ACID [Concomitant]
  3. METOPROLOL TARTRATE [Concomitant]
  4. FORTEO [Suspect]
     Indication: OSTEOPOROSIS
     Dosage: 20 UG, QD
     Route: 058
     Dates: start: 20110224
  5. LOVASTATIN [Concomitant]
  6. PROTONIX [Concomitant]
  7. FERREX [Concomitant]
  8. CELEXA [Concomitant]

REACTIONS (6)
  - FALL [None]
  - BALANCE DISORDER [None]
  - DIZZINESS [None]
  - HAND FRACTURE [None]
  - FACE INJURY [None]
  - TRAUMATIC FRACTURE [None]
